FAERS Safety Report 21821917 (Version 3)
Quarter: 2023Q2

REPORT INFORMATION
  Report Type: Spontaneous
  Country: BR (occurrence: None)
  Receive Date: 20230105
  Receipt Date: 20230412
  Transmission Date: 20230721
  Serious: Yes (Hospitalization, Other)
  Sender: FDA-Public Use
  Company Number: 2022A419845

PATIENT
  Age: 74 Year
  Sex: Female
  Weight: 91.8 kg

DRUGS (4)
  1. IMFINZI [Suspect]
     Active Substance: DURVALUMAB
     Indication: Squamous cell carcinoma of lung
     Dosage: 10 MG/KG
     Route: 042
     Dates: start: 20210608, end: 20211223
  2. IMFINZI [Suspect]
     Active Substance: DURVALUMAB
     Indication: Squamous cell carcinoma of lung
     Dosage: RESUMED
     Route: 042
  3. CARBOPLATIN [Concomitant]
     Active Substance: CARBOPLATIN
  4. PACLITAXEL [Concomitant]
     Active Substance: PACLITAXEL

REACTIONS (7)
  - COVID-19 [Unknown]
  - Cellulitis [Unknown]
  - Skin infection [Unknown]
  - Purulent discharge [Unknown]
  - Oedema [Unknown]
  - Immune-mediated pancreatitis [Recovered/Resolved]
  - Erythema [Unknown]

NARRATIVE: CASE EVENT DATE: 20220101
